FAERS Safety Report 8205582-X (Version None)
Quarter: 2012Q1

REPORT INFORMATION
  Report Type: 
  Country: None (occurrence: None)
  Receive Date: 20120227
  Receipt Date: 20111209
  Transmission Date: 20120608
  Serious: No
  Sender: FDA-Public Use
  Company Number: 341158

PATIENT
  Age: 44 Year
  Sex: Female

DRUGS (4)
  1. METFORMIN HCL [Concomitant]
  2. SIMVASTATIN [Concomitant]
  3. VICTOZA [Suspect]
     Indication: PRODUCT USED FOR UNKNOWN INDICATION
     Dosage: SUBCUTANEOUS
     Route: 058
  4. LISINOPRIL [Concomitant]

REACTIONS (4)
  - WEIGHT INCREASED [None]
  - INJECTION SITE URTICARIA [None]
  - BLOOD GLUCOSE INCREASED [None]
  - INJECTION SITE PRURITUS [None]
